FAERS Safety Report 5886752-2 (Version None)
Quarter: 2008Q3

REPORT INFORMATION
  Report Type: 
  Country: None (occurrence: None)
  Receive Date: 20080917
  Receipt Date: 20080915
  Transmission Date: 20090109
  Serious: Yes (Other)
  Sender: FDA-Public Use
  Company Number: US-BRISTOL-MYERS SQUIBB COMPANY-14335129

PATIENT
  Age: 53 Year
  Sex: Male

DRUGS (7)
  1. STAVUDINE [Suspect]
     Indication: ANTIRETROVIRAL THERAPY
  2. DIDANOSINE [Suspect]
     Indication: ANTIRETROVIRAL THERAPY
  3. ATAZANAVIR [Suspect]
     Indication: ANTIRETROVIRAL THERAPY
  4. LAMIVUDINE [Suspect]
     Indication: ANTIRETROVIRAL THERAPY
  5. NELFINAVIR [Suspect]
     Indication: ANTIRETROVIRAL THERAPY
  6. NEVIRAPINE [Suspect]
  7. RITONAVIR [Suspect]
     Indication: ANTIRETROVIRAL THERAPY

REACTIONS (5)
  - EYELID PTOSIS [None]
  - LIPODYSTROPHY ACQUIRED [None]
  - NEUROPATHY PERIPHERAL [None]
  - OPHTHALMOPLEGIA [None]
  - SINUS BRADYCARDIA [None]
